FAERS Safety Report 15684208 (Version 1)
Quarter: 2018Q4

REPORT INFORMATION
  Report Type: Spontaneous
  Country: US (occurrence: US)
  Receive Date: 20181204
  Receipt Date: 20181204
  Transmission Date: 20190205
  Serious: No
  Sender: FDA-Public Use
  Company Number: US-TEVA-2018-US-979718

PATIENT
  Sex: Male

DRUGS (3)
  1. CLONAZEPAM TABLETS [Suspect]
     Active Substance: CLONAZEPAM
     Indication: DIZZINESS
  2. CLONAZEPAM TABLETS [Suspect]
     Active Substance: CLONAZEPAM
     Indication: VESTIBULAR DISORDER
     Route: 065
  3. CLONAZEPAM TABLETS [Suspect]
     Active Substance: CLONAZEPAM
     Indication: VERTIGO

REACTIONS (2)
  - Drug ineffective [Unknown]
  - Product use in unapproved indication [Unknown]
